FAERS Safety Report 25728390 (Version 1)
Quarter: 2025Q3

REPORT INFORMATION
  Report Type: Spontaneous
  Country: US (occurrence: US)
  Receive Date: 20250826
  Receipt Date: 20250826
  Transmission Date: 20251021
  Serious: No
  Sender: GILEAD
  Company Number: US-GILEAD-2025-0723937

PATIENT
  Age: 61 Year
  Sex: Male

DRUGS (1)
  1. LENACAPAVIR [Suspect]
     Active Substance: LENACAPAVIR
     Indication: HIV infection
     Route: 058
     Dates: start: 20250807

REACTIONS (3)
  - Injection site discharge [Unknown]
  - Nodule [Unknown]
  - Injection site swelling [Unknown]

NARRATIVE: CASE EVENT DATE: 20250807
